FAERS Safety Report 11216951 (Version 1)
Quarter: 2015Q2

REPORT INFORMATION
  Report Type: Spontaneous
  Country: US (occurrence: None)
  Receive Date: 20150623
  Receipt Date: 20150623
  Transmission Date: 20150821
  Serious: Yes (Hospitalization, Disabling, Other)
  Sender: FDA-Public Use
  Company Number: None

PATIENT
  Age: 50 Year
  Sex: Female
  Weight: 95.26 kg

DRUGS (5)
  1. CYMBALTA [Suspect]
     Active Substance: DULOXETINE HYDROCHLORIDE
     Indication: DEPRESSION
     Route: 048
     Dates: end: 20150311
  2. MULTIVITAMIN [Concomitant]
     Active Substance: VITAMINS
  3. B2 [Concomitant]
  4. BIOTIN [Concomitant]
     Active Substance: BIOTIN
  5. B-6 [Concomitant]

REACTIONS (14)
  - Mood swings [None]
  - Loss of consciousness [None]
  - Vomiting [None]
  - Seizure [None]
  - Fear [None]
  - Crying [None]
  - Decreased appetite [None]
  - Nightmare [None]
  - Tremor [None]
  - Amnesia [None]
  - Delusion [None]
  - Suicidal ideation [None]
  - Hostility [None]
  - Insomnia [None]

NARRATIVE: CASE EVENT DATE: 20150315
